FAERS Safety Report 5298908-0 (Version None)
Quarter: 2007Q2

REPORT INFORMATION
  Report Type: 
  Country: None (occurrence: None)
  Receive Date: 20070417
  Receipt Date: 20070404
  Transmission Date: 20071010
  Serious: Yes (Other)
  Sender: FDA-Public Use
  Company Number: PHEH2007US04101

PATIENT
  Age: 42 Year
  Sex: Female

DRUGS (2)
  1. ZELNORM [Suspect]
     Indication: CONSTIPATION
     Dosage: 6 MG, BID
     Dates: start: 20070207, end: 20070404
  2. ZELNORM [Suspect]
     Dosage: 2 MG, BID
     Dates: start: 20060101

REACTIONS (3)
  - BREAST CANCER [None]
  - HYPERTENSION [None]
  - MASTECTOMY [None]
